FAERS Safety Report 16894908 (Version 2)
Quarter: 2019Q4

REPORT INFORMATION
  Report Type: Report from Study
  Country: JP (occurrence: JP)
  Receive Date: 20191008
  Receipt Date: 20191120
  Transmission Date: 20200122
  Serious: Yes (Hospitalization)
  Sender: FDA-Public Use
  Company Number: JP-ACTELION-A-CH2018-167385

PATIENT
  Age: 70 Year
  Sex: Male
  Weight: 67 kg

DRUGS (18)
  1. OPSUMIT [Suspect]
     Active Substance: MACITENTAN
     Indication: PULMONARY ARTERIAL HYPERTENSION
     Dosage: 10 MG, QD
     Route: 048
     Dates: start: 20161206
  2. SIGMART [Concomitant]
     Active Substance: NICORANDIL
  3. TANATRIL [Concomitant]
     Active Substance: IMIDAPRIL
     Dosage: UNK
     Dates: start: 20180302
  4. CRESTOR [Concomitant]
     Active Substance: ROSUVASTATIN CALCIUM
  5. ACOFIDE [Concomitant]
     Active Substance: ACOTIAMIDE HYDROCHLORIDE
  6. PURSENNID [Concomitant]
  7. URINORM [Concomitant]
     Active Substance: BENZBROMARONE
  8. TAKECAB [Concomitant]
     Active Substance: VONOPRAZAN FUMURATE
  9. GASMOTIN [Concomitant]
     Active Substance: MOSAPRIDE CITRATE
     Dosage: UNK
     Dates: end: 20180614
  10. CALONAL [Concomitant]
     Active Substance: ACETAMINOPHEN
  11. LAXOBERON [Concomitant]
     Active Substance: SODIUM PICOSULFATE
  12. LENDORMIN [Concomitant]
     Active Substance: BROTIZOLAM
  13. DIOVAN [Concomitant]
     Active Substance: VALSARTAN
     Dosage: UNK
     Dates: end: 20180302
  14. BAYASPIRIN [Concomitant]
     Active Substance: ASPIRIN
  15. FLUITRAN [Concomitant]
     Active Substance: TRICHLORMETHIAZIDE
     Dosage: UNK
     Dates: start: 20180321
  16. CEREKINON [Concomitant]
     Active Substance: TRIMEBUTINE
     Indication: DIARRHOEA
     Dosage: UNK
     Dates: start: 20180417, end: 20180614
  17. ADALAT [Concomitant]
     Active Substance: NIFEDIPINE
  18. METALCAPTASE [Concomitant]
     Active Substance: PENICILLAMINE

REACTIONS (9)
  - Atrial fibrillation [Recovering/Resolving]
  - Bradycardia [Recovering/Resolving]
  - Pulmonary hypertension [Recovering/Resolving]
  - Nausea [Recovering/Resolving]
  - Diarrhoea [Recovering/Resolving]
  - Dyspnoea [Recovering/Resolving]
  - Abdominal discomfort [Recovering/Resolving]
  - Gastrooesophageal reflux disease [Recovering/Resolving]
  - Cardiac pacemaker insertion [Recovering/Resolving]

NARRATIVE: CASE EVENT DATE: 20170829
